FAERS Safety Report 24137117 (Version 1)
Quarter: 2024Q3

REPORT INFORMATION
  Report Type: Spontaneous
  Country: GB (occurrence: GB)
  Receive Date: 20240725
  Receipt Date: 20240725
  Transmission Date: 20241017
  Serious: Yes (Other)
  Sender: B BRAUN
  Company Number: GB-B.Braun Medical Inc.-2159595

PATIENT
  Age: 33 Year
  Sex: Female

DRUGS (2)
  1. METRONIDAZOLE [Suspect]
     Active Substance: METRONIDAZOLE
     Indication: Tooth abscess
     Dates: start: 20240709
  2. Rigdvidon - oral contraceptive [Concomitant]

REACTIONS (2)
  - Chromaturia [Not Recovered/Not Resolved]
  - Renal pain [Not Recovered/Not Resolved]
